FAERS Safety Report 10701013 (Version 1)
Quarter: 2015Q1

REPORT INFORMATION
  Report Type: Spontaneous
  Country: US (occurrence: None)
  Receive Date: 20150108
  Receipt Date: 20150108
  Transmission Date: 20150721
  Serious: Yes (Life-Threatening, Disabling)
  Sender: FDA-Public Use
  Company Number: None

PATIENT
  Age: 44 Year
  Sex: Female

DRUGS (1)
  1. HYDROCORTISONE. [Suspect]
     Active Substance: HYDROCORTISONE
     Indication: ADDISON^S DISEASE
     Route: 048

REACTIONS (6)
  - Product quality issue [None]
  - Abdominal pain upper [None]
  - Product substitution issue [None]
  - Migraine [None]
  - Weight decreased [None]
  - Adrenocortical insufficiency acute [None]

NARRATIVE: CASE EVENT DATE: 20150106
